FAERS Safety Report 10006207 (Version 2)
Quarter: 2014Q1

REPORT INFORMATION
  Report Type: Report from Study
  Country: GB (occurrence: GB)
  Receive Date: 20140313
  Receipt Date: 20140313
  Transmission Date: 20141002
  Serious: Yes (Hospitalization)
  Sender: FDA-Public Use
  Company Number: 2013SP004558

PATIENT
  Age: 3 Year
  Sex: Male
  Weight: 15 kg

DRUGS (17)
  1. DOXORUBICIN [Suspect]
     Indication: NEOPLASM MALIGNANT
     Route: 040
     Dates: start: 20130504
  2. IFOSFAMIDE [Suspect]
     Indication: NEOPLASM MALIGNANT
     Route: 041
     Dates: start: 20130504
  3. DACTINOMYCIN [Suspect]
     Indication: NEOPLASM MALIGNANT
     Route: 040
     Dates: start: 20130504
  4. VINCRISTINE SULFATE [Suspect]
     Indication: NEOPLASM MALIGNANT
     Route: 040
     Dates: start: 20130504
  5. DEXAMETHASONE [Concomitant]
     Indication: PRODUCT USED FOR UNKNOWN INDICATION
     Dates: start: 20130504, end: 20130505
  6. LEVOMEPROMAZINE [Concomitant]
     Indication: PRODUCT USED FOR UNKNOWN INDICATION
     Dates: start: 20130504
  7. METOCLOPRAMIDE [Concomitant]
     Indication: PRODUCT USED FOR UNKNOWN INDICATION
     Dates: start: 20130504
  8. MACROGOL 3350 [Concomitant]
     Indication: PRODUCT USED FOR UNKNOWN INDICATION
  9. POLYETHYLENE GLYCOL 3350 [Concomitant]
  10. POTASSIUM CHLORIDE [Concomitant]
  11. SODIUM BICARBONATE [Concomitant]
  12. SODIUM CHLORIDE [Concomitant]
  13. ONDANSETRON [Concomitant]
     Indication: PRODUCT USED FOR UNKNOWN INDICATION
     Dates: start: 20130504
  14. PANTOPRAZOLE [Concomitant]
     Indication: PRODUCT USED FOR UNKNOWN INDICATION
     Dates: start: 20130505
  15. PARACETAMOL [Concomitant]
     Indication: PRODUCT USED FOR UNKNOWN INDICATION
     Dates: start: 20130506
  16. PARACETAMOL [Concomitant]
     Indication: PRODUCT USED FOR UNKNOWN INDICATION
     Dates: start: 20130430
  17. TAZOCIN [Concomitant]
     Indication: PRODUCT USED FOR UNKNOWN INDICATION
     Dates: start: 20130513

REACTIONS (3)
  - Febrile neutropenia [Unknown]
  - Hypophagia [Unknown]
  - Pleural effusion [Unknown]
